FAERS Safety Report 8862969 (Version 1)
Quarter: 2012Q4

REPORT INFORMATION
  Report Type: 
  Country: US (occurrence: US)
  Receive Date: 20121026
  Receipt Date: 20121026
  Transmission Date: 20130627
  Serious: No
  Sender: FDA-Public Use
  Company Number: US-ALLERGAN-1204318US

PATIENT
  Age: 75 Year
  Sex: Female

DRUGS (3)
  1. ALPHAGAN P [Suspect]
     Indication: INCREASED INTRAOCULAR PRESSURE
     Dosage: 1 Gtt, bid
     Route: 047
     Dates: start: 20120214
  2. PRED FORTE [Suspect]
     Indication: EYE INFLAMMATION
     Dosage: 2 Gtt, UNK
     Route: 047
     Dates: start: 20120322
  3. TRAVIDAN [Concomitant]
     Indication: POSTOPERATIVE CARE
     Dosage: 1 Gtt, qhs
     Route: 047
     Dates: start: 20120214

REACTIONS (2)
  - Erythema [Not Recovered/Not Resolved]
  - Ocular vascular disorder [Not Recovered/Not Resolved]
